FAERS Safety Report 7514222-4 (Version None)
Quarter: 2011Q2

REPORT INFORMATION
  Report Type: 
  Country: None (occurrence: None)
  Receive Date: 20110531
  Receipt Date: 20110523
  Transmission Date: 20111010
  Serious: Yes (Other)
  Sender: FDA-Public Use
  Company Number: US-RB-026070-11

PATIENT
  Age: 49 Year
  Sex: Male

DRUGS (2)
  1. SERAX [Suspect]
     Indication: ANXIETY DISORDER
     Dosage: DOSAGE INFORMATION UNKNOWN
     Route: 048
     Dates: start: 20030101, end: 20110201
  2. SUBOXONE [Suspect]
     Indication: DRUG DEPENDENCE
     Dosage: SUBLINGUAL FILM
     Route: 060
     Dates: start: 20110201, end: 20110401

REACTIONS (5)
  - PANIC ATTACK [None]
  - OFF LABEL USE [None]
  - SUICIDAL IDEATION [None]
  - CONDITION AGGRAVATED [None]
  - ANXIETY [None]
